FAERS Safety Report 13273609 (Version 1)
Quarter: 2017Q1

REPORT INFORMATION
  Report Type: Spontaneous
  Country: DE (occurrence: DE)
  Receive Date: 20170227
  Receipt Date: 20170227
  Transmission Date: 20170428
  Serious: Yes (Congenital Anomaly, Other)
  Sender: FDA-Public Use
  Company Number: DE-JNJFOC-20170220639

PATIENT
  Age: 6 Day
  Sex: Female
  Weight: 2.98 kg

DRUGS (2)
  1. REMICADE [Suspect]
     Active Substance: INFLIXIMAB
     Indication: COLITIS ULCERATIVE
     Dosage: MOTHER^S DOSING
     Route: 064
     Dates: start: 20151010, end: 20160623
  2. FOLIC ACID. [Concomitant]
     Active Substance: FOLIC ACID
     Indication: PROPHYLAXIS OF NEURAL TUBE DEFECT
     Route: 064

REACTIONS (4)
  - Congenital aortic anomaly [Unknown]
  - Atrial septal defect [Unknown]
  - Foetal exposure during pregnancy [Recovered/Resolved]
  - Thrombocytopenia neonatal [Recovered/Resolved]
